FAERS Safety Report 24140896 (Version 2)
Quarter: 2024Q4

REPORT INFORMATION
  Report Type: Spontaneous
  Country: CA (occurrence: None)
  Receive Date: 20240726
  Receipt Date: 20241014
  Transmission Date: 20250115
  Serious: Yes (Hospitalization, Other)
  Sender: ORION
  Company Number: CA-PFIZER INC-202400222001

PATIENT
  Age: 44 Year
  Sex: Male

DRUGS (10)
  1. METHOTREXATE [Interacting]
     Active Substance: METHOTREXATE
     Indication: Product used for unknown indication
  2. METHOTREXATE [Interacting]
     Active Substance: METHOTREXATE
  3. RINVOQ [Interacting]
     Active Substance: UPADACITINIB
     Indication: Product used for unknown indication
     Dates: start: 2024, end: 20240723
  4. FOLIC ACID [Concomitant]
     Active Substance: FOLIC ACID
  5. HUMIRA [Concomitant]
     Active Substance: ADALIMUMAB
  6. HUMIRA [Concomitant]
     Active Substance: ADALIMUMAB
     Dosage: SHIFTED TO RINVOQ IN EARLY 2024
     Dates: end: 2023
  7. PREDNISONE [Concomitant]
     Active Substance: PREDNISONE
     Dates: start: 202404, end: 202406
  8. REMICADE [Concomitant]
     Active Substance: INFLIXIMAB
     Dosage: STOPPED DUE TO ANTIBODY FORMATION
  9. STELARA [Concomitant]
     Active Substance: USTEKINUMAB
     Dosage: STOPPED DUE TO INTOLERABILITY DUE TO MYALGIA
     Dates: start: 2022, end: 2022
  10. ABRILADA [Concomitant]
     Active Substance: ADALIMUMAB-AFZB
     Indication: Crohn^s disease
     Dosage: WK0=160 MG, WK2=80 MG THEN 80 MG Q2 WK
     Dates: start: 20240813

REACTIONS (5)
  - Intestinal obstruction [Unknown]
  - Weight decreased [Unknown]
  - Intestinal stenosis [Unknown]
  - Drug interaction [Unknown]
  - Back pain [Not Recovered/Not Resolved]
